FAERS Safety Report 5366946-5 (Version None)
Quarter: 2007Q2

REPORT INFORMATION
  Report Type: 
  Country: None (occurrence: None)
  Receive Date: 20070622
  Receipt Date: 20070305
  Transmission Date: 20071010
  Serious: No
  Sender: FDA-Public Use
  Company Number: US-ASTRAZENECA-2007UW04324

PATIENT
  Age: 37 Year
  Sex: Female
  Weight: 43.1 kg

DRUGS (4)
  1. RHINOCORT [Suspect]
     Indication: SINUSITIS
     Dosage: 2 SPRAYS EACH NOSTRIL IN A.M. AND HS
     Route: 045
     Dates: start: 20050101
  2. ADVAIR DISKUS 100/50 [Concomitant]
  3. ZYRTEC [Concomitant]
  4. ALLERGY INJECTION [Concomitant]

REACTIONS (9)
  - ASTHMA [None]
  - BACTERIAL INFECTION [None]
  - DYSURIA [None]
  - FEELING JITTERY [None]
  - HEADACHE [None]
  - MUSCLE SPASMS [None]
  - MUSCLE TWITCHING [None]
  - RASH [None]
  - VAGINAL PAIN [None]
